FAERS Safety Report 10170669 (Version 2)
Quarter: 2014Q2

REPORT INFORMATION
  Report Type: Spontaneous
  Country: JP (occurrence: JP)
  Receive Date: 20140514
  Receipt Date: 20140611
  Transmission Date: 20141212
  Serious: Yes (Life-Threatening, Hospitalization)
  Sender: FDA-Public Use
  Company Number: JP-AMGEN-JPNSP2014034141

PATIENT
  Age: 66 Year
  Sex: Female

DRUGS (3)
  1. PRALIA [Suspect]
     Indication: OSTEOPOROSIS
     Dosage: 60 MG/TIMES
     Route: 058
     Dates: start: 20140318
  2. EDIROL [Concomitant]
     Dosage: 0.75 MUG, QD
     Route: 065
     Dates: start: 20130326
  3. VIVIANT [Concomitant]
     Indication: FEMORAL NECK FRACTURE
     Dosage: 20 MG, QD
     Route: 065
     Dates: start: 20130326

REACTIONS (2)
  - Cardiac failure congestive [Recovered/Resolved]
  - Dyspnoea [Unknown]
